FAERS Safety Report 21706571 (Version 2)
Quarter: 2022Q4

REPORT INFORMATION
  Report Type: Spontaneous
  Country: TR (occurrence: TR)
  Receive Date: 20221209
  Receipt Date: 20221213
  Transmission Date: 20230113
  Serious: Yes (Death, Other)
  Sender: FDA-Public Use
  Company Number: TR-BAYER-2022P024953

PATIENT
  Age: 66 Year
  Sex: Female

DRUGS (2)
  1. NEXAVAR [Suspect]
     Active Substance: SORAFENIB
     Indication: Hepatocellular carcinoma
     Dosage: UNKNOWN
  2. BETAFERON [Suspect]
     Active Substance: INTERFERON BETA-1B
     Dosage: UNK
     Route: 058

REACTIONS (8)
  - Death [Fatal]
  - Hepatic steatosis [None]
  - Hepatic cirrhosis [None]
  - Chronic hepatitis C [None]
  - Diabetes mellitus [None]
  - Hepatic fibrosis [None]
  - Alcohol use [None]
  - Blood HIV RNA increased [None]
